FAERS Safety Report 4958356-7 (Version None)
Quarter: 2006Q1

REPORT INFORMATION
  Report Type: 
  Country: None (occurrence: None)
  Receive Date: 20060330
  Receipt Date: 20060327
  Transmission Date: 20060701
  Serious: Yes (Other)
  Sender: FDA-Public Use
  Company Number: US-AVENTIS-200613082GDDC

PATIENT
  Age: 29 Year
  Sex: Female
  Weight: 63.49 kg

DRUGS (7)
  1. INSULIN GLARGINE [Suspect]
     Indication: DIABETES MELLITUS INSULIN-DEPENDENT
     Dosage: DOSE UNIT: UNITS
     Route: 058
     Dates: start: 20020901
  2. LISPRO [Suspect]
     Indication: DIABETES MELLITUS INSULIN-DEPENDENT
     Dosage: DOSE UNIT: UNITS
     Route: 058
     Dates: start: 20050922
  3. LISPRO [Suspect]
     Dosage: DOSE UNIT: UNITS
     Route: 058
     Dates: start: 20050922
  4. LISPRO [Suspect]
     Dosage: DOSE UNIT: UNITS
     Route: 058
     Dates: start: 20050922
  5. HUMALOG [Suspect]
  6. PROZAC [Concomitant]
     Dosage: DOSE: UNK
     Dates: start: 20040623
  7. LEVOTHYROXINE SODIUM [Concomitant]
     Dates: start: 20030123

REACTIONS (2)
  - HYPOGLYCAEMIA [None]
  - ROAD TRAFFIC ACCIDENT [None]
